FAERS Safety Report 5698181-5 (Version None)
Quarter: 2008Q2

REPORT INFORMATION
  Report Type: 
  Country: None (occurrence: None)
  Receive Date: 20080408
  Receipt Date: 20080327
  Transmission Date: 20081010
  Serious: Yes (Life-Threatening, Other)
  Sender: FDA-Public Use
  Company Number: CA-PFIZER INC-2008018729

PATIENT
  Sex: Male
  Weight: 90.7 kg

DRUGS (6)
  1. CHAMPIX [Suspect]
     Indication: SMOKING CESSATION THERAPY
     Route: 048
     Dates: start: 20080114, end: 20080120
  2. PRAVASTATIN [Concomitant]
     Indication: DYSLIPIDAEMIA
  3. RANITIDINE [Concomitant]
  4. CLONAZEPAM [Concomitant]
     Indication: DEPRESSION
  5. BUPROPION HCL [Concomitant]
     Indication: DEPRESSION
  6. SEROQUEL [Concomitant]
     Indication: DEPRESSION

REACTIONS (2)
  - DEPRESSION [None]
  - SUICIDAL IDEATION [None]
